FAERS Safety Report 19232579 (Version 1)
Quarter: 2021Q2

REPORT INFORMATION
  Report Type: Report from Study
  Country: CA (occurrence: CA)
  Receive Date: 20210507
  Receipt Date: 20210507
  Transmission Date: 20210717
  Serious: Yes (Hospitalization)
  Sender: FDA-Public Use
  Company Number: CA-REGENERON PHARMACEUTICALS, INC.-2021-47907

PATIENT

DRUGS (1)
  1. EYLEA [Suspect]
     Active Substance: AFLIBERCEPT
     Indication: DIABETIC RETINAL OEDEMA
     Dosage: 2 MG, EYE UNK; TOTAL NUMBER OF DOSES UNK; LAST DOSE UNK
     Dates: start: 20210415

REACTIONS (2)
  - Hospitalisation [Unknown]
  - Iron deficiency [Unknown]
